FAERS Safety Report 15065336 (Version 3)
Quarter: 2018Q3

REPORT INFORMATION
  Report Type: Report from Study
  Country: GB (occurrence: GB)
  Receive Date: 20180626
  Receipt Date: 20180808
  Transmission Date: 20181010
  Serious: Yes (Hospitalization)
  Sender: FDA-Public Use
  Company Number: GB-ROCHE-2141788

PATIENT
  Age: 61 Year
  Sex: Male
  Weight: 85.1 kg

DRUGS (14)
  1. TADALAFIL [Concomitant]
     Active Substance: TADALAFIL
     Indication: ERECTILE DYSFUNCTION
     Route: 048
  2. AMOXICILLIN. [Concomitant]
     Active Substance: AMOXICILLIN
     Indication: LOWER RESPIRATORY TRACT INFECTION
     Route: 048
     Dates: start: 20150720, end: 20150727
  3. FLUCLOXACILLIN [Concomitant]
     Active Substance: FLUCLOXACILLIN
     Indication: HERPES ZOSTER
     Route: 048
     Dates: start: 20151008, end: 20151013
  4. SODIUM ALGINATE [Concomitant]
     Active Substance: SODIUM ALGINATE
     Indication: DYSPEPSIA
     Route: 048
     Dates: start: 20140829
  5. SALBUTAMOL [Concomitant]
     Active Substance: ALBUTEROL
     Indication: ASTHMA
     Route: 055
  6. DOMPERIDONE [Concomitant]
     Active Substance: DOMPERIDONE
     Indication: NAUSEA
     Route: 048
     Dates: start: 20140930
  7. ACICLOVIR [Concomitant]
     Active Substance: ACYCLOVIR
     Indication: HERPES ZOSTER
     Route: 048
     Dates: start: 20151008, end: 20151013
  8. SALOFALK [Concomitant]
     Active Substance: MESALAMINE
     Indication: PROCTITIS
     Dosage: PER RECTUM
     Route: 054
     Dates: start: 20160222, end: 20160516
  9. IBUPROFEN. [Concomitant]
     Active Substance: IBUPROFEN
     Indication: PAIN
     Route: 048
     Dates: start: 20141003
  10. ATEZOLIZUMAB. [Suspect]
     Active Substance: ATEZOLIZUMAB
     Indication: BLADDER TRANSITIONAL CELL CARCINOMA METASTATIC
     Dosage: DATE OF MOST RECENT DOSE OF MPDL3280A PRIOR TO AE ONSET 19 APR 2016
     Route: 042
     Dates: start: 20140930
  11. HYDROXOCOBALAMIN [Concomitant]
     Active Substance: HYDROXOCOBALAMIN
     Indication: BLOOD IRON DECREASED
     Route: 030
  12. DERMOL [Concomitant]
     Active Substance: BENZALKONIUM CHLORIDE\CHLORHEXIDINE HYDROCHLORIDE\ISOPROPYL MYRISTATE\PARAFFIN
     Indication: DRY SKIN
     Route: 061
     Dates: start: 20150107
  13. TADALAFIL [Concomitant]
     Active Substance: TADALAFIL
     Route: 048
  14. BECLOMETHASONE [Concomitant]
     Active Substance: BECLOMETHASONE
     Indication: COUGH
     Dosage: 2 PUFF
     Route: 055
     Dates: start: 20141107

REACTIONS (1)
  - Colitis [Recovered/Resolved]

NARRATIVE: CASE EVENT DATE: 20150605
